FAERS Safety Report 5285887-5 (Version None)
Quarter: 2007Q2

REPORT INFORMATION
  Report Type: 
  Country: None (occurrence: None)
  Receive Date: 20070404
  Receipt Date: 20070222
  Transmission Date: 20071010
  Serious: Yes (Disabling)
  Sender: FDA-Public Use
  Company Number: DE-SANOFI-SYNTHELABO-A01200700186

PATIENT
  Sex: Female
  Weight: 49 kg

DRUGS (3)
  1. ISCOVER [Suspect]
     Indication: ATRIAL FIBRILLATION
     Route: 048
  2. ISCOVER [Suspect]
     Indication: CEREBRAL ARTERY EMBOLISM
     Route: 048
  3. ISCOVER [Suspect]
     Indication: ARTERIAL OCCLUSIVE DISEASE
     Route: 048

REACTIONS (2)
  - RETINAL HAEMORRHAGE [None]
  - RETINAL VEIN THROMBOSIS [None]
